FAERS Safety Report 14584053 (Version 1)
Quarter: 2018Q1

REPORT INFORMATION
  Report Type: Spontaneous
  Country: US (occurrence: US)
  Receive Date: 20180228
  Receipt Date: 20180228
  Transmission Date: 20180509
  Serious: No
  Sender: FDA-Public Use
  Company Number: US-009507513-1802USA012678

PATIENT
  Sex: Female

DRUGS (1)
  1. TRUSOPT [Suspect]
     Active Substance: DORZOLAMIDE HYDROCHLORIDE
     Indication: INTRAOCULAR PRESSURE TEST
     Route: 047

REACTIONS (2)
  - Ocular hyperaemia [Unknown]
  - Drug hypersensitivity [Unknown]
